FAERS Safety Report 12246493 (Version 1)
Quarter: 2016Q2

REPORT INFORMATION
  Report Type: Spontaneous
  Country: FR (occurrence: FR)
  Receive Date: 20160407
  Receipt Date: 20160407
  Transmission Date: 20160815
  Serious: Yes (Other)
  Sender: FDA-Public Use
  Company Number: FR-ASTRAZENECA-2016SE35641

PATIENT
  Age: 32253 Day
  Sex: Male

DRUGS (7)
  1. ELIQUIS [Suspect]
     Active Substance: APIXABAN
     Route: 048
     Dates: start: 20150430, end: 201505
  2. AMIODARONE [Concomitant]
     Active Substance: AMIODARONE
     Route: 048
     Dates: start: 20150508
  3. COAPROVEL [Suspect]
     Active Substance: HYDROCHLOROTHIAZIDE\IRBESARTAN
     Dosage: 300MG/12.5MG ONCE IN THE MORNING
     Route: 048
     Dates: start: 20150508
  4. NITRIDERM [Concomitant]
     Active Substance: NITROGLYCERIN
     Route: 062
     Dates: start: 20150508
  5. INEXIUM [Suspect]
     Active Substance: ESOMEPRAZOLE
     Route: 048
     Dates: start: 20150508
  6. DIFFU-K [Concomitant]
     Active Substance: POTASSIUM CHLORIDE
  7. SPAGULAX [Concomitant]
     Active Substance: PLANTAGO OVATA SEED
     Dates: start: 20150508

REACTIONS (2)
  - Condition aggravated [Recovered/Resolved]
  - Acute kidney injury [Recovered/Resolved]

NARRATIVE: CASE EVENT DATE: 20150512
